FAERS Safety Report 17557333 (Version 2)
Quarter: 2020Q2

REPORT INFORMATION
  Report Type: Report from Study
  Country: AU (occurrence: AU)
  Receive Date: 20200318
  Receipt Date: 20200424
  Transmission Date: 20200713
  Serious: Yes (Death)
  Sender: FDA-Public Use
  Company Number: AU-TOLMAR, INC.-2019AU007133

PATIENT
  Age: 67 Year
  Sex: Male

DRUGS (2)
  1. ELIGARD [Suspect]
     Active Substance: LEUPROLIDE ACETATE
     Indication: PROSTATE CANCER
     Dosage: 45 MG, Q 6 MONTH
     Route: 058
  2. XTANDI [Suspect]
     Active Substance: ENZALUTAMIDE
     Indication: PRODUCT USED FOR UNKNOWN INDICATION
     Route: 065

REACTIONS (5)
  - Erectile dysfunction [Unknown]
  - Hot flush [Unknown]
  - Death [Fatal]
  - Fatigue [Unknown]
  - Pain [Unknown]

NARRATIVE: CASE EVENT DATE: 20200413
